FAERS Safety Report 9554433 (Version 2)
Quarter: 2013Q3

REPORT INFORMATION
  Report Type: Report from Study
  Country: JP (occurrence: JP)
  Receive Date: 20130925
  Receipt Date: 20130925
  Transmission Date: 20140515
  Serious: Yes (Death, Other)
  Sender: FDA-Public Use
  Company Number: JP-009507513-1303JPN006441

PATIENT
  Age: 63 Year
  Sex: Male
  Weight: 72 kg

DRUGS (36)
  1. TEMODAL [Suspect]
     Indication: ANAPLASTIC ASTROCYTOMA
     Dosage: 75 MG/M2, QD
     Route: 048
     Dates: start: 20110314, end: 20110426
  2. TEMODAL [Suspect]
     Dosage: 150 MG/M2, QD
     Route: 048
     Dates: start: 20110524, end: 20110528
  3. TEMODAL [Suspect]
     Dosage: 150 MG/M2, QD
     Route: 048
     Dates: start: 20110628, end: 20110702
  4. TEMODAL [Suspect]
     Dosage: 150 MG/M2, QD
     Route: 048
     Dates: start: 20110726, end: 20110730
  5. TEMODAL [Suspect]
     Dosage: 150 MG/M2, QD
     Route: 048
     Dates: start: 20110823, end: 20110827
  6. TEMODAL [Suspect]
     Dosage: 150 MG/M2, QD
     Route: 048
     Dates: start: 20110920, end: 20110924
  7. TEMODAL [Suspect]
     Dosage: 150 MG/M2, QD
     Route: 048
     Dates: start: 20111018, end: 20111022
  8. TEMODAL [Suspect]
     Dosage: 150 MG/M2, QD
     Route: 048
     Dates: start: 20111115, end: 20111119
  9. TEMODAL [Suspect]
     Dosage: 150 MG/M2, QD
     Route: 048
     Dates: start: 20111213, end: 20111217
  10. TEMODAL [Suspect]
     Dosage: 150 MG/M2, QD
     Route: 048
     Dates: start: 20120110, end: 20120114
  11. TEMODAL [Suspect]
     Dosage: 150 MG/M2, QD
     Route: 048
     Dates: start: 20120207, end: 20120211
  12. TEMODAL [Suspect]
     Dosage: 150 MG/M2, QD
     Route: 048
     Dates: start: 20120306, end: 20120310
  13. TEMODAL [Suspect]
     Dosage: 150 MG/M2, QD
     Route: 048
     Dates: start: 20120410, end: 20120414
  14. TEMODAL [Suspect]
     Dosage: 150 MG/M2, QD
     Route: 048
     Dates: start: 20120515, end: 20120519
  15. TEMODAL [Suspect]
     Dosage: 150 MG/M2, QD
     Route: 048
     Dates: start: 20120619, end: 20120623
  16. TEMODAL [Suspect]
     Dosage: 150 MG/M2, QD
     Route: 048
     Dates: start: 20120724, end: 20120728
  17. TEMODAL [Suspect]
     Dosage: 150 MG/M2, QD
     Route: 048
     Dates: start: 20120802, end: 20120806
  18. TEMODAL [Suspect]
     Dosage: 150 MG/M2, QD
     Route: 048
     Dates: start: 20120904, end: 20120908
  19. TEMODAL [Suspect]
     Dosage: 150 MG/M2, QD
     Route: 048
     Dates: start: 20121009, end: 20121013
  20. BAKTAR [Suspect]
     Indication: ANTIFUNGAL PROPHYLAXIS
     Dosage: DOSAGE IS UNCERTAIN DURING A DAY.
     Route: 048
     Dates: start: 20110502, end: 20110506
  21. EXCEGRAN [Suspect]
     Indication: ANTIFUNGAL PROPHYLAXIS
     Dosage: DOSAGE IS UNCERTAIN DURING A DAY
     Dates: start: 20110209, end: 20110517
  22. DEXAMETHASONE [Concomitant]
     Dosage: DOSAGE IS UNCERTAIN DURING A DAY.
     Route: 048
     Dates: start: 20110209, end: 20120802
  23. ALLOZYM [Concomitant]
     Dosage: DOSAGE IS UNCERTAIN DURING A DAY.
     Route: 048
     Dates: end: 20120802
  24. ZOFRAN ZYDIS [Concomitant]
     Indication: PROPHYLAXIS
     Dosage: DOSAGE IS UNCERTAIN DURING A DAY.
     Route: 048
     Dates: start: 20110314, end: 20120802
  25. TERPERAN [Concomitant]
     Indication: PROPHYLAXIS
     Dosage: DOSAGE IS UNCERTAIN DURING A DAY.
     Route: 048
     Dates: start: 20110314, end: 20120802
  26. BEZATOL [Concomitant]
     Dosage: DOSAGE IS UNCERTAIN DURING A DAY.
     Route: 048
     Dates: end: 20120802
  27. AMLODIPINE BESYLATE [Concomitant]
     Dosage: DOSAGE IS UNCERTAIN DURING A DAY.
     Route: 048
     Dates: end: 20120802
  28. DIOVAN [Concomitant]
     Dosage: DOSAGE IS UNCERTAIN DURING A DAY.
     Route: 048
     Dates: end: 20120802
  29. METHYCOBAL [Concomitant]
     Dosage: DOSAGE IS UNCERTAIN DURING A DAY.
     Route: 048
     Dates: start: 20110319, end: 20120802
  30. MAGNESIUM OXIDE [Concomitant]
     Dosage: DOSAGE IS UNCERTAIN DURING A DAY.
     Route: 048
     Dates: start: 20110331, end: 20110505
  31. HIRUDOID [Concomitant]
     Dosage: DOSAGE IS UNCERTAIN DURING A DAY.
     Route: 061
     Dates: end: 20120802
  32. TRANSAMIN [Concomitant]
     Indication: PROPHYLAXIS
     Dosage: DOSAGE IS UNCERTAIN DURING A DAY.
     Route: 048
     Dates: start: 20110502, end: 20110506
  33. MAGLAX [Concomitant]
     Indication: PROPHYLAXIS
     Dosage: DOSAGE IS UNCERTAIN DURING A DAY.
     Route: 048
     Dates: start: 20110506, end: 20120802
  34. DEPAKENE [Concomitant]
     Dosage: DOSAGE IS UNCERTAIN DURING A DAY.
     Route: 048
     Dates: start: 20110517, end: 20120731
  35. DEPAKENE [Concomitant]
     Dosage: DOSAGE IS UNCERTAIN DURING A DAY
     Route: 048
     Dates: start: 20120801, end: 20121018
  36. PREDNISOLONE [Concomitant]
     Dosage: DOSAGE IS UNCERTAIN DURING A DAY.
     Route: 048
     Dates: start: 20120803, end: 20121018

REACTIONS (15)
  - Pancytopenia [Recovered/Resolved]
  - Cough [Recovered/Resolved]
  - Gastric ulcer [Recovered/Resolved]
  - Productive cough [Recovered/Resolved]
  - Stoma site infection [Recovered/Resolved]
  - Pruritus [Recovered/Resolved]
  - Vomiting [Recovered/Resolved]
  - Nausea [Recovered/Resolved]
  - Dizziness [Recovered/Resolved]
  - Hyperlipidaemia [Recovered/Resolved]
  - Disease progression [Fatal]
  - Back pain [Recovered/Resolved]
  - Drug eruption [Recovered/Resolved]
  - Constipation [Recovered/Resolved]
  - Hyperglycaemia [Recovered/Resolved]
